FAERS Safety Report 15851962 (Version 1)
Quarter: 2019Q1

REPORT INFORMATION
  Report Type: Spontaneous
  Country: HR (occurrence: HR)
  Receive Date: 20190122
  Receipt Date: 20190122
  Transmission Date: 20190417
  Serious: Yes (Other)
  Sender: FDA-Public Use
  Company Number: HR-BAUSCH-BL-2019-001425

PATIENT
  Sex: Female

DRUGS (6)
  1. MAGNESIUM SULFATE. [Suspect]
     Active Substance: MAGNESIUM SULFATE
     Indication: PRE-ECLAMPSIA
     Dosage: DOSE FORM: UNSPECIFIED
     Route: 064
     Dates: start: 201808, end: 201808
  2. DIAZEPAM. [Suspect]
     Active Substance: DIAZEPAM
     Indication: GESTATIONAL HYPERTENSION
     Dosage: DOSE FORM: UNSPECIFIED
     Route: 064
     Dates: start: 201808, end: 201808
  3. ALDOMET [Suspect]
     Active Substance: METHYLDOPA
     Indication: GESTATIONAL HYPERTENSION
     Dosage: DOSE FORM: UNSPECIFIED
     Route: 064
     Dates: start: 201808, end: 201808
  4. CLEXANE [Suspect]
     Active Substance: ENOXAPARIN SODIUM
     Indication: THROMBOSIS PROPHYLAXIS
     Dosage: DOSE FORM: UNSPECIFIED
     Route: 064
     Dates: start: 201808, end: 201808
  5. EBRANTIL [Suspect]
     Active Substance: URAPIDIL
     Indication: GESTATIONAL HYPERTENSION
     Dosage: DOSE FORM: UNSPECIFIED
     Route: 064
     Dates: start: 201808, end: 201808
  6. DEXAMETAZON [Suspect]
     Active Substance: DEXAMETHASONE
     Indication: MATERNAL THERAPY TO ENHANCE FOETAL LUNG MATURITY
     Dosage: DOSE FORM: UNSPECIFIED
     Route: 064
     Dates: start: 201808, end: 201808

REACTIONS (1)
  - Foetal exposure during pregnancy [Recovered/Resolved]

NARRATIVE: CASE EVENT DATE: 201808
